FAERS Safety Report 9607834 (Version 1)
Quarter: 2013Q4

REPORT INFORMATION
  Report Type: Spontaneous
  Country: US (occurrence: None)
  Receive Date: 20131008
  Receipt Date: 20131008
  Transmission Date: 20140711
  Serious: Yes (Disabling, Other)
  Sender: FDA-Public Use
  Company Number: None

PATIENT
  Age: 47 Year
  Sex: Female
  Weight: 63.5 kg

DRUGS (1)
  1. QNASL 80 MCG PER SPRAY TEVA RESPIRATORY LLC [Suspect]
     Indication: EAR DISCOMFORT
     Dosage: 2 SQIRTS PER NOSTRIL ONCE DAILY INHALATION
     Route: 055
     Dates: start: 20130913, end: 20130928

REACTIONS (1)
  - Cataract [None]
